FAERS Safety Report 20957462 (Version 2)
Quarter: 2022Q2

REPORT INFORMATION
  Report Type: Spontaneous
  Country: US (occurrence: US)
  Receive Date: 20220614
  Receipt Date: 20220620
  Transmission Date: 20220721
  Serious: No
  Sender: FDA-Public Use
  Company Number: US-TOLMAR, INC.-22US035152

PATIENT
  Sex: Male

DRUGS (1)
  1. KETOCONAZOLE [Suspect]
     Active Substance: KETOCONAZOLE
     Indication: Hair growth abnormal
     Dosage: UNK, Q 3 WEEK

REACTIONS (7)
  - Fungal skin infection [Unknown]
  - Scratch [Unknown]
  - Skin exfoliation [Unknown]
  - Cyst [Unknown]
  - Off label use [None]
  - Alopecia [Unknown]
  - Dry skin [Unknown]
